FAERS Safety Report 6885919-4 (Version None)
Quarter: 2010Q3

REPORT INFORMATION
  Report Type: 
  Country: None (occurrence: None)
  Receive Date: 20100729
  Receipt Date: 20081009
  Transmission Date: 20110219
  Serious: No
  Sender: FDA-Public Use
  Company Number: US-PFIZER INC-2008084860

PATIENT
  Sex: Female
  Weight: 84.1 kg

DRUGS (9)
  1. QUINAPRIL HCL [Suspect]
     Indication: BLOOD PRESSURE
     Dates: start: 20080701
  2. ASTELIN [Concomitant]
  3. CALCIUM [Concomitant]
  4. CARVEDILOL [Concomitant]
  5. ACETYLSALICYLIC ACID SRT [Concomitant]
  6. CHLORZOXAZONE [Concomitant]
  7. MAGNESIUM OXIDE [Concomitant]
  8. ESTRADIOL [Concomitant]
  9. FLUTICASONE PROPIONATE [Concomitant]

REACTIONS (1)
  - MEDICATION RESIDUE [None]
